FAERS Safety Report 10020627 (Version 2)
Quarter: 2014Q2

REPORT INFORMATION
  Report Type: Report from Study
  Country: BR (occurrence: BR)
  Receive Date: 20140319
  Receipt Date: 20140526
  Transmission Date: 20141212
  Serious: Yes (Other)
  Sender: FDA-Public Use
  Company Number: PHHY2014BR031549

PATIENT
  Sex: Male
  Weight: 59 kg

DRUGS (4)
  1. EXJADE [Suspect]
     Indication: SICKLE CELL ANAEMIA
     Dosage: 1 DF, DAILY
     Route: 048
  2. EXJADE [Suspect]
     Dosage: 2 DF, DAILY
     Route: 048
  3. DIPYRONE [Concomitant]
     Indication: PAIN
     Dosage: 1 DF, EVERY 6 HRS
  4. DORFLEX [Concomitant]
     Indication: PAIN
     Dosage: 1 DF, EVERY 6 HRS

REACTIONS (8)
  - Anaemia [Recovered/Resolved]
  - Retching [Recovered/Resolved]
  - Vomiting [Recovered/Resolved]
  - Diarrhoea [Not Recovered/Not Resolved]
  - Abdominal pain upper [Recovering/Resolving]
  - Viral infection [Recovered/Resolved]
  - Pyrexia [Recovered/Resolved]
  - Malaise [Recovered/Resolved]
